FAERS Safety Report 18078899 (Version 1)
Quarter: 2020Q3

REPORT INFORMATION
  Report Type: Spontaneous
  Country: US (occurrence: US)
  Receive Date: 20200728
  Receipt Date: 20200728
  Transmission Date: 20201103
  Serious: No
  Sender: FDA-Public Use
  Company Number: US-ASTRAZENECA-2020SE84406

PATIENT
  Sex: Male
  Weight: 96.6 kg

DRUGS (8)
  1. ATENOLOL. [Concomitant]
     Active Substance: ATENOLOL
     Indication: BLOOD PRESSURE ABNORMAL
  2. BYDUREON [Suspect]
     Active Substance: EXENATIDE
     Indication: GLYCOSYLATED HAEMOGLOBIN INCREASED
     Route: 058
     Dates: start: 201807
  3. PIOGLITAZONE. [Concomitant]
     Active Substance: PIOGLITAZONE
     Indication: DIABETES MELLITUS
     Dosage: 15.0MG UNKNOWN
  4. LISINOPRIL. [Concomitant]
     Active Substance: LISINOPRIL
  5. TRIAMT/HCTZ [Concomitant]
     Active Substance: HYDROCHLOROTHIAZIDE\TRIAMTERENE
     Indication: BLOOD PRESSURE ABNORMAL
     Dosage: 75/50
  6. ATORVASTATIN [Concomitant]
     Active Substance: ATORVASTATIN
  7. XARELTO [Concomitant]
     Active Substance: RIVAROXABAN
     Indication: ATRIAL FIBRILLATION
  8. HYDROCODONE [Concomitant]
     Active Substance: HYDROCODONE
     Indication: BACK PAIN
     Dates: start: 2012

REACTIONS (11)
  - Balance disorder [Unknown]
  - Injection site extravasation [Unknown]
  - Feeling abnormal [Unknown]
  - Influenza like illness [Unknown]
  - Dizziness [Unknown]
  - Thinking abnormal [Unknown]
  - Headache [Unknown]
  - Injection site haemorrhage [Unknown]
  - Gait disturbance [Unknown]
  - Speech disorder [Unknown]
  - Incorrect dose administered [Unknown]
